FAERS Safety Report 5831532-7 (Version None)
Quarter: 2008Q3

REPORT INFORMATION
  Report Type: 
  Country: None (occurrence: None)
  Receive Date: 20080801
  Receipt Date: 20080722
  Transmission Date: 20090109
  Serious: Yes (Other)
  Sender: FDA-Public Use
  Company Number: US-MERCK-0807USA04360

PATIENT

DRUGS (4)
  1. SINGULAIR [Suspect]
     Indication: RHINITIS ALLERGIC
     Route: 048
     Dates: start: 20080701
  2. SINGULAIR [Suspect]
     Indication: ASTHMA
     Route: 048
     Dates: start: 20080701
  3. ADVAIR DISKUS 100/50 [Concomitant]
     Route: 065
  4. VERAMYST [Concomitant]
     Route: 065

REACTIONS (4)
  - ANXIETY [None]
  - ASTHMA [None]
  - DEPRESSION [None]
  - SUICIDAL IDEATION [None]
